FAERS Safety Report 5382960-8 (Version None)
Quarter: 2007Q3

REPORT INFORMATION
  Report Type: 
  Country: None (occurrence: None)
  Receive Date: 20070710
  Receipt Date: 20070705
  Transmission Date: 20080115
  Serious: Yes (Other)
  Sender: FDA-Public Use
  Company Number: A0661894A

PATIENT
  Age: 64 Year
  Sex: Female

DRUGS (16)
  1. TYKERB [Suspect]
     Indication: BREAST CANCER
     Dosage: 1250MG PER DAY
     Route: 048
     Dates: start: 20070629
  2. LASIX [Concomitant]
  3. POTASSIUM ACETATE [Concomitant]
  4. LISINOPRIL [Concomitant]
  5. VICODIN [Concomitant]
  6. LEXAPRO [Concomitant]
  7. MULTI-VITAMIN [Concomitant]
  8. DOXIL [Concomitant]
  9. OMEPRAZOLE [Concomitant]
  10. UNSPECIFIED MEDICATION [Concomitant]
  11. TOPROL-XL [Concomitant]
  12. ATIVAN [Concomitant]
  13. BENADRYL [Concomitant]
  14. COUMADIN [Concomitant]
  15. AMITRIPTYLINE HCL [Concomitant]
  16. DURAGESIC-100 [Concomitant]

REACTIONS (5)
  - DIARRHOEA [None]
  - DYSPEPSIA [None]
  - HALLUCINATION, AUDITORY [None]
  - NAUSEA [None]
  - TREMOR [None]
